FAERS Safety Report 18392437 (Version 2)
Quarter: 2020Q4

REPORT INFORMATION
  Report Type: Report from Study
  Country: CA (occurrence: CA)
  Receive Date: 20201016
  Receipt Date: 20201027
  Transmission Date: 20210114
  Serious: Yes (Other)
  Sender: FDA-Public Use
  Company Number: CA-JNJFOC-20201008354

PATIENT
  Age: 34 Year
  Sex: Male

DRUGS (1)
  1. SPRAVATO [Suspect]
     Active Substance: ESKETAMINE
     Indication: DEPRESSION
     Dosage: THIRD DOSE GIVEN ON 02-OCT-2020
     Route: 045
     Dates: start: 20201002, end: 20201002

REACTIONS (7)
  - Nightmare [Unknown]
  - Amnesia [Unknown]
  - Dysarthria [Unknown]
  - Irritability [Unknown]
  - Headache [Unknown]
  - Sedation [Unknown]
  - Anger [Unknown]
